FAERS Safety Report 6176004-8 (Version None)
Quarter: 2009Q2

REPORT INFORMATION
  Report Type: 
  Country: None (occurrence: None)
  Receive Date: 20090501
  Receipt Date: 20090416
  Transmission Date: 20091009
  Serious: Yes (Hospitalization)
  Sender: FDA-Public Use
  Company Number: DE-ROCHE-627660

PATIENT
  Sex: Female

DRUGS (5)
  1. CAPECITABINE [Suspect]
     Indication: BREAST CANCER
     Dosage: REPORTED FREQUENCY : DAY 1-14 EVERY 3 WEEK.
     Route: 048
     Dates: start: 20071212, end: 20080306
  2. TAXOL [Suspect]
     Indication: BREAST CANCER
     Route: 042
     Dates: start: 20071212, end: 20080306
  3. CYCLOPHOSPHAMIDE [Suspect]
     Indication: BREAST CANCER
     Dosage: REPORTED FREQUENCY : Q2W
     Route: 042
     Dates: start: 20071017, end: 20071128
  4. EPIRUBICIN [Suspect]
     Indication: BREAST CANCER
     Dosage: FREQUENCY REPORTED ; Q2W
     Route: 042
     Dates: start: 20071017, end: 20071128
  5. NEORECORMON [Concomitant]
     Dosage: REPORTED DOSE : 30000 I.E, REPORTED FREQUENCY ; Q2W

REACTIONS (1)
  - PNEUMONIA [None]
